FAERS Safety Report 4441700-7 (Version None)
Quarter: 2004Q3

REPORT INFORMATION
  Report Type: 
  Country: None (occurrence: None)
  Receive Date: 20040901
  Receipt Date: 20040810
  Transmission Date: 20050211
  Serious: Yes (Death, Hospitalization)
  Sender: FDA-Public Use
  Company Number: DL2004197

PATIENT
  Age: 22 Year
  Sex: Female

DRUGS (1)
  1. MIFEPRISTONE TABLETS, 200 MG (DANCON LABS) [Suspect]
     Indication: ABORTION INDUCED
     Dosage: 200 MG, ORAL
     Route: 048
     Dates: start: 20040108

REACTIONS (10)
  - ABORTION INFECTED [None]
  - CARDIO-RESPIRATORY ARREST [None]
  - ENDOMETRITIS [None]
  - GASTROINTESTINAL OEDEMA [None]
  - MYOCARDITIS [None]
  - PNEUMONIA [None]
  - PROCEDURAL COMPLICATION [None]
  - RETROPERITONEAL OEDEMA [None]
  - URETERAL NECROSIS [None]
  - UTERINE ABSCESS [None]
